FAERS Safety Report 19999780 (Version 3)
Quarter: 2021Q4

REPORT INFORMATION
  Report Type: Spontaneous
  Country: DE (occurrence: DE)
  Receive Date: 20211027
  Receipt Date: 20211122
  Transmission Date: 20220304
  Serious: No
  Sender: FDA-Public Use
  Company Number: DE-JNJFOC-20211031183

PATIENT
  Sex: Female

DRUGS (2)
  1. SIMPONI [Suspect]
     Active Substance: GOLIMUMAB
     Indication: Product used for unknown indication
     Dosage: STRENGTH: 50.00 MG / 0.50 ML
     Route: 058
  2. SIMPONI [Suspect]
     Active Substance: GOLIMUMAB

REACTIONS (2)
  - Injection site discomfort [Unknown]
  - Needle issue [Unknown]
